FAERS Safety Report 6836984-1 (Version None)
Quarter: 2010Q3

REPORT INFORMATION
  Report Type: 
  Country: None (occurrence: None)
  Receive Date: 20100713
  Receipt Date: 20100706
  Transmission Date: 20110219
  Serious: Yes (Hospitalization)
  Sender: FDA-Public Use
  Company Number: PHHO2010NL07127

PATIENT
  Sex: Male
  Weight: 79 kg

DRUGS (3)
  1. NEORAL [Suspect]
     Indication: RENAL TRANSPLANT
     Dosage: 50 MG, BID
     Route: 048
     Dates: start: 20100210
  2. CERTICAN [Suspect]
     Indication: RENAL TRANSPLANT
     Dosage: 0.75 MG, BID
     Route: 048
     Dates: start: 20100210
  3. PREDNISOLONE [Concomitant]
     Indication: RENAL TRANSPLANT
     Dosage: 5 MG / DAY
     Route: 048
     Dates: start: 20100210

REACTIONS (6)
  - DEVICE DISLOCATION [None]
  - ENTEROCOCCAL INFECTION [None]
  - NEPHROSTOMY TUBE PLACEMENT [None]
  - PYREXIA [None]
  - URETERIC DILATATION [None]
  - URINARY TRACT INFECTION [None]
